FAERS Safety Report 18592366 (Version 2)
Quarter: 2020Q4

REPORT INFORMATION
  Report Type: Spontaneous
  Country: US (occurrence: US)
  Receive Date: 20201208
  Receipt Date: 20201217
  Transmission Date: 20210114
  Serious: Yes (Other)
  Sender: FDA-Public Use
  Company Number: US-BAYER-2020-263649

PATIENT
  Age: 57 Year
  Sex: Male

DRUGS (1)
  1. KOGENATE FS [Suspect]
     Active Substance: ANTIHEMOPHILIC FACTOR, HUMAN RECOMBINANT
     Dosage: 4200 U
     Route: 042

REACTIONS (3)
  - Medical procedure [Recovered/Resolved]
  - Haemorrhage [None]
  - Catheter site swelling [None]

NARRATIVE: CASE EVENT DATE: 20201116
